FAERS Safety Report 9028156 (Version 2)
Quarter: 2013Q1

REPORT INFORMATION
  Report Type: Spontaneous
  Country: GB (occurrence: GB)
  Receive Date: 20130123
  Receipt Date: 20130201
  Transmission Date: 20140127
  Serious: Yes (Death, Hospitalization)
  Sender: FDA-Public Use
  Company Number: GB-SHIRE-ALL1-2013-00330

PATIENT
  Age: 23 Year
  Sex: Male
  Weight: 67 kg

DRUGS (8)
  1. ELAPRASE [Suspect]
     Indication: MUCOPOLYSACCHARIDOSIS II
     Dosage: 30 MG, 1X/2WKS
     Route: 041
     Dates: start: 20120124, end: 20130102
  2. FUROSEMIDE [Concomitant]
     Indication: PRODUCT USED FOR UNKNOWN INDICATION
     Dosage: UNK, OTHER (4 TIMES A WEEK)
     Route: 048
  3. HEPARIN FLUSH [Concomitant]
     Indication: PRODUCT USED FOR UNKNOWN INDICATION
     Dosage: 400 IU, UNKNOWN
     Route: 040
     Dates: end: 20130108
  4. SALINE                             /00075401/ [Concomitant]
     Indication: PRODUCT USED FOR UNKNOWN INDICATION
     Dosage: 10 ML, UNKNOWN (VIA PORT)
     Route: 040
     Dates: end: 20130108
  5. SALINE                             /00075401/ [Concomitant]
     Dosage: 100 ML, UNKNOWN(VIA PORT)
     Route: 041
     Dates: end: 20130108
  6. SALINE                             /00075401/ [Concomitant]
     Dosage: 20 ML, UNKNOWN (VIA PORT)
     Route: 040
     Dates: end: 20130108
  7. PREDNISOLONE [Concomitant]
     Indication: PREMEDICATION
     Dosage: 10 MG, UNKNOWN
     Route: 048
     Dates: end: 20130108
  8. CHLORPHENAMINE [Concomitant]
     Indication: PREMEDICATION
     Dosage: 4 MG, UNKNOWN
     Route: 048
     Dates: end: 20130113

REACTIONS (9)
  - Death [Fatal]
  - Respiratory arrest [Unknown]
  - Cardiac arrest [Unknown]
  - Adverse drug reaction [Unknown]
  - Dysphagia [Unknown]
  - Eye swelling [Unknown]
  - Dyspnoea [Unknown]
  - Wheezing [Unknown]
  - Lower respiratory tract infection [Unknown]
